FAERS Safety Report 5311169-9 (Version None)
Quarter: 2007Q2

REPORT INFORMATION
  Report Type: 
  Country: None (occurrence: None)
  Receive Date: 20070426
  Receipt Date: 20070426
  Transmission Date: 20071010
  Serious: Yes (Other)
  Sender: FDA-Public Use
  Company Number: None

PATIENT
  Sex: Female
  Weight: 61.55 kg

DRUGS (2)
  1. CARBOPLATIN [Suspect]
     Indication: OVARIAN CANCER
     Dosage: 539 MG/330ML Q 3 WEEKS IV
     Route: 042
     Dates: start: 20061201
  2. CARBOPLATIN [Suspect]
     Indication: OVARIAN CANCER
     Dosage: 539 MG/330ML Q 3 WEEKS IV
     Route: 042
     Dates: start: 20061222

REACTIONS (5)
  - CHEST DISCOMFORT [None]
  - DRUG HYPERSENSITIVITY [None]
  - ERYTHEMA [None]
  - INFUSION RELATED REACTION [None]
  - MICTURITION URGENCY [None]
